FAERS Safety Report 16300901 (Version 1)
Quarter: 2019Q2

REPORT INFORMATION
  Report Type: Spontaneous
  Country: GB (occurrence: GB)
  Receive Date: 20190510
  Receipt Date: 20190510
  Transmission Date: 20190711
  Serious: Yes (Other)
  Sender: FDA-Public Use
  Company Number: GB-BAUSCH-BL-2019-013517

PATIENT
  Age: 63 Year
  Sex: Female
  Weight: 76.2 kg

DRUGS (1)
  1. METFORMIN HYDROCHLORIDE. [Suspect]
     Active Substance: METFORMIN HYDROCHLORIDE
     Indication: DIABETES MELLITUS
     Route: 048
     Dates: start: 20190410, end: 20190411

REACTIONS (5)
  - Lethargy [Recovering/Resolving]
  - Abdominal discomfort [Recovered/Resolved]
  - Malaise [Recovering/Resolving]
  - Depression [Recovering/Resolving]
  - Nightmare [Recovered/Resolved]
